FAERS Safety Report 20076476 (Version 2)
Quarter: 2022Q1

REPORT INFORMATION
  Report Type: Spontaneous
  Country: US (occurrence: None)
  Receive Date: 20211116
  Receipt Date: 20220107
  Transmission Date: 20220423
  Serious: No
  Sender: FDA-Public Use
  Company Number: 2021A790266

PATIENT
  Sex: Male
  Weight: 113.4 kg

DRUGS (9)
  1. BYDUREON BCISE [Suspect]
     Active Substance: EXENATIDE
     Indication: Type 2 diabetes mellitus
     Route: 058
  2. BYDUREON [Suspect]
     Active Substance: EXENATIDE
     Indication: Type 2 diabetes mellitus
     Route: 058
  3. METFORMIN FOR DIABETES [Concomitant]
  4. COERIG HEART MEDICATION [Concomitant]
  5. UNSPECIFIED INGREDIENT [Concomitant]
     Active Substance: UNSPECIFIED INGREDIENT
  6. VALSARTAN HIGH BLOOD PRESSURE MEDICATION [Concomitant]
  7. LEVOTHYROXINE FOR THYROID [Concomitant]
  8. VITAMINS [Concomitant]
     Active Substance: VITAMINS
  9. UNSPECIFIED INGREDIENT [Concomitant]
     Active Substance: UNSPECIFIED INGREDIENT

REACTIONS (8)
  - Finger deformity [Unknown]
  - Incorrect dose administered by device [Unknown]
  - Wrong technique in device usage process [Unknown]
  - Device leakage [Unknown]
  - Device delivery system issue [Unknown]
  - Needle issue [Unknown]
  - Injury associated with device [Unknown]
  - Device mechanical issue [Unknown]
